FAERS Safety Report 16695625 (Version 1)
Quarter: 2019Q3

REPORT INFORMATION
  Report Type: Spontaneous
  Country: US (occurrence: US)
  Receive Date: 20190813
  Receipt Date: 20190813
  Transmission Date: 20191004
  Serious: Yes (Hospitalization, Other)
  Sender: FDA-Public Use
  Company Number: US-AUROBINDO-AUR-APL-2019-045945

PATIENT

DRUGS (1)
  1. LOPERAMIDE [Suspect]
     Active Substance: LOPERAMIDE
     Indication: PRODUCT USED FOR UNKNOWN INDICATION
     Dosage: 70-90 TABLETS OF LOPERAMIDE OVER THE PREVIOUS 5 DAYS
     Route: 065

REACTIONS (6)
  - Unmasking of previously unidentified disease [Recovered/Resolved]
  - Drug abuse [Recovered/Resolved]
  - Electrocardiogram QT prolonged [Recovered/Resolved]
  - Nausea [Recovered/Resolved]
  - Brugada syndrome [Recovered/Resolved]
  - Intentional overdose [Recovered/Resolved]
